FAERS Safety Report 23040615 (Version 2)
Quarter: 2024Q3

REPORT INFORMATION
  Report Type: Spontaneous
  Country: HR (occurrence: HR)
  Receive Date: 20231006
  Receipt Date: 20240823
  Transmission Date: 20241016
  Serious: Yes (Other)
  Sender: TEVA
  Company Number: HR-TEVA-2023-HR-2931247

PATIENT
  Age: 63 Year
  Sex: Male

DRUGS (27)
  1. CISPLATIN [Suspect]
     Active Substance: CISPLATIN
     Indication: Light chain disease
     Dosage: 1 TIME AS A PART OF KD+PACE REGIMEN
     Route: 065
     Dates: start: 202303
  2. CISPLATIN [Suspect]
     Active Substance: CISPLATIN
     Indication: Light chain disease
     Dosage: DOSAGE TEXT: 1X KD
     Route: 065
     Dates: start: 202303, end: 202303
  3. LENALIDOMIDE [Suspect]
     Active Substance: LENALIDOMIDE
     Indication: Light chain disease
     Dosage: 5 TIMES AS A PART OF DRD REGIMEN
     Route: 065
     Dates: start: 202208, end: 202302
  4. DARZALEX [Suspect]
     Active Substance: DARATUMUMAB
     Indication: Light chain disease
     Dosage: 5 TIMES AS A PART OF DRD REGIMEN
     Route: 065
     Dates: start: 202208, end: 202302
  5. DARATUMUMAB [Suspect]
     Active Substance: DARATUMUMAB
     Indication: Plasma cell myeloma
     Dosage: DOSAGE TEXT: 5X DRD
     Route: 065
     Dates: start: 202208, end: 202302
  6. CARFILZOMIB [Suspect]
     Active Substance: CARFILZOMIB
     Indication: Plasma cell myeloma
     Dosage: 3 TIMES, AS A PART OF KD+MP REGIMEN
     Route: 065
     Dates: start: 202304, end: 202306
  7. CARFILZOMIB [Suspect]
     Active Substance: CARFILZOMIB
     Indication: Plasma cell myeloma
     Dosage: DOSAGE TEXT: 3X KD
     Route: 065
     Dates: start: 202304, end: 202306
  8. CARFILZOMIB [Suspect]
     Active Substance: CARFILZOMIB
     Indication: Plasma cell myeloma
     Dosage: 1 TIME AS A PART OF KD+PACE REGIMEN
     Route: 065
     Dates: start: 202303
  9. CARFILZOMIB [Suspect]
     Active Substance: CARFILZOMIB
     Indication: Plasma cell myeloma
     Dosage: DOSAGE TEXT: 1X KD
     Route: 065
     Dates: start: 202303, end: 202303
  10. CYCLOPHOSPHAMIDE [Suspect]
     Active Substance: CYCLOPHOSPHAMIDE
     Indication: Plasma cell myeloma
     Dosage: 5 TIMES AS A PART OF VCD REGIMEN
     Route: 065
     Dates: start: 202203, end: 202205
  11. CYCLOPHOSPHAMIDE [Suspect]
     Active Substance: CYCLOPHOSPHAMIDE
     Indication: Plasma cell myeloma
     Dosage: DOSAGE TEXT: 1X KD
     Route: 065
     Dates: start: 202303, end: 202303
  12. CYCLOPHOSPHAMIDE [Suspect]
     Active Substance: CYCLOPHOSPHAMIDE
     Indication: Plasma cell myeloma
     Dosage: 1 TIME AS A PART OF KD+ PACE REGIMEN
     Route: 065
     Dates: start: 202303
  13. ETOPOSIDE [Suspect]
     Active Substance: ETOPOSIDE
     Indication: Light chain disease
     Dosage: DOSAGE TEXT: 1X KD
     Route: 065
     Dates: start: 202303, end: 202303
  14. PREDNISONE [Suspect]
     Active Substance: PREDNISONE
     Indication: Plasma cell myeloma
     Dosage: 3 TIMES, AS A PART OF KD+MP REGIMEN
     Route: 065
     Dates: start: 202304, end: 202306
  15. PREDNISONE [Suspect]
     Active Substance: PREDNISONE
     Indication: Plasma cell myeloma
     Dosage: DOSAGE TEXT: 3X KD
     Route: 065
     Dates: start: 202304, end: 202306
  16. DEXAMETHASONE [Suspect]
     Active Substance: DEXAMETHASONE
     Indication: Plasma cell myeloma
     Dosage: 5 TIMES AS A PART OF VCD REGIMEN
     Route: 065
     Dates: start: 202203, end: 202205
  17. DEXAMETHASONE [Suspect]
     Active Substance: DEXAMETHASONE
     Indication: Plasma cell myeloma
     Dosage: DOSAGE TEXT: 1X KD
     Route: 065
     Dates: start: 202303, end: 202303
  18. DEXAMETHASONE [Suspect]
     Active Substance: DEXAMETHASONE
     Indication: Plasma cell myeloma
     Dosage: 1 TIME AS A PART OF KD+PACE REGIMEN
     Route: 065
     Dates: start: 202303
  19. DEXAMETHASONE [Suspect]
     Active Substance: DEXAMETHASONE
     Indication: Plasma cell myeloma
     Dosage: DOSAGE TEXT: 5X DRD
     Route: 065
     Dates: start: 202208, end: 202302
  20. DEXAMETHASONE [Suspect]
     Active Substance: DEXAMETHASONE
     Indication: Plasma cell myeloma
     Dosage: 3 TIMES AS A PART OF VAD+ IXAZOMIB REGIMEN
     Route: 065
     Dates: start: 202306, end: 202308
  21. DEXAMETHASONE [Suspect]
     Active Substance: DEXAMETHASONE
     Indication: Plasma cell myeloma
     Dosage: 3 TIMES, AS A PART OF KD+MP REGIMEN
     Route: 065
     Dates: start: 202304, end: 202306
  22. DOXORUBICIN [Suspect]
     Active Substance: DOXORUBICIN
     Indication: Light chain disease
     Dosage: 3 TIMES AS A PART OF VAD+ IXAZOMIB REGIMEN
     Route: 065
     Dates: start: 202306, end: 202308
  23. DOXORUBICIN [Suspect]
     Active Substance: DOXORUBICIN
     Indication: Light chain disease
     Dosage: 1 TIME AS A PART OF KD+ PACE REGIMEN
     Route: 065
     Dates: start: 202303, end: 202303
  24. MELPHALAN [Suspect]
     Active Substance: MELPHALAN
     Indication: Light chain disease
     Dosage: 3 TIMES, AS A PART OF KD+MP REGIMEN
     Route: 065
     Dates: start: 202304, end: 202306
  25. IXAZOMIB [Suspect]
     Active Substance: IXAZOMIB
     Indication: Plasma cell myeloma
     Dosage: 3 TIMES AS A PART OF VAD+ IXAZOMIB REGIMEN
     Route: 065
     Dates: start: 202306, end: 202308
  26. VELCADE [Suspect]
     Active Substance: BORTEZOMIB
     Indication: Light chain disease
     Dosage: 5 TIMES AS A PART OF VCD REGIMEN
     Route: 065
     Dates: start: 202203, end: 202205
  27. VINCRISTINE [Suspect]
     Active Substance: VINCRISTINE
     Indication: Plasma cell myeloma
     Dosage: 3 TIMES AS A PART OF VAD+ IXAZOMIB REGIMEN
     Route: 065
     Dates: start: 202306, end: 202308

REACTIONS (5)
  - Febrile neutropenia [Unknown]
  - Plasma cell myeloma [Unknown]
  - Light chain disease [Unknown]
  - Neutropenia [Unknown]
  - Therapy partial responder [Unknown]

NARRATIVE: CASE EVENT DATE: 20230101
